FAERS Safety Report 17457711 (Version 2)
Quarter: 2020Q1

REPORT INFORMATION
  Report Type: Spontaneous
  Country: US (occurrence: US)
  Receive Date: 20200225
  Receipt Date: 20200225
  Transmission Date: 20200409
  Serious: Yes (Life-Threatening)
  Sender: FDA-Public Use
  Company Number: US-PFIZER INC-2020071470

PATIENT
  Age: 22 Month
  Sex: Male

DRUGS (7)
  1. BENZYLPENICILLIN POTASSIUM [Suspect]
     Active Substance: PENICILLIN G POTASSIUM
     Indication: BACTERIAL INFECTION
     Dosage: UNK (50, 1000S UNITS)
     Dates: start: 19940516
  2. BENZYLPENICILLIN POTASSIUM [Suspect]
     Active Substance: PENICILLIN G POTASSIUM
     Dosage: UNK (30, 1000S UNITS)
     Dates: start: 19940516
  3. BENZYLPENICILLIN POTASSIUM [Suspect]
     Active Substance: PENICILLIN G POTASSIUM
     Dosage: UNK (30, 1000S UNITS)
     Dates: start: 19940520
  4. SULFADIAZINE. [Concomitant]
     Active Substance: SULFADIAZINE
     Dosage: 0.5 G, EVERY 4 HRS
     Dates: start: 19440507
  5. BENZYLPENICILLIN POTASSIUM [Suspect]
     Active Substance: PENICILLIN G POTASSIUM
     Dosage: UNK (30, 1000S UNITS)
     Dates: start: 19940521
  6. BENZYLPENICILLIN POTASSIUM [Suspect]
     Active Substance: PENICILLIN G POTASSIUM
     Indication: CNS VENTRICULITIS
     Dosage: UNK (INTRAVENTRICULAR)
     Route: 020
  7. BENZYLPENICILLIN POTASSIUM [Suspect]
     Active Substance: PENICILLIN G POTASSIUM
     Dosage: UNK (30, 1000S UNITS)
     Dates: start: 19940522

REACTIONS (4)
  - Incorrect route of product administration [Unknown]
  - Off label use [Unknown]
  - Coma [Unknown]
  - Muscle twitching [Recovered/Resolved]
